FAERS Safety Report 15630245 (Version 1)
Quarter: 2018Q4

REPORT INFORMATION
  Report Type: Spontaneous
  Country: US (occurrence: US)
  Receive Date: 20181117
  Receipt Date: 20181117
  Transmission Date: 20190205
  Serious: Yes (Death, Life-Threatening, Hospitalization, Disabling, Other)
  Sender: FDA-Public Use
  Company Number: None

PATIENT
  Age: 28 Year
  Sex: Male
  Weight: 207 kg

DRUGS (1)
  1. VIVITROL [Suspect]
     Active Substance: NALTREXONE
     Indication: DRUG DEPENDENCE
     Dosage: ?          OTHER FREQUENCY:1X MONTH;?
     Route: 030
     Dates: start: 20170101, end: 20170501

REACTIONS (5)
  - Peripheral swelling [None]
  - Migraine [None]
  - Liver disorder [None]
  - Weight increased [None]
  - Renal disorder [None]

NARRATIVE: CASE EVENT DATE: 20170201
